FAERS Safety Report 18664665 (Version 1)
Quarter: 2020Q4

REPORT INFORMATION
  Report Type: Spontaneous
  Country: US (occurrence: US)
  Receive Date: 20201225
  Receipt Date: 20201225
  Transmission Date: 20210114
  Serious: No
  Sender: FDA-Public Use
  Company Number: US-GLAXOSMITHKLINE-US2020249599

PATIENT
  Sex: Female

DRUGS (1)
  1. NUCALA [Suspect]
     Active Substance: MEPOLIZUMAB
     Indication: ASTHMA
     Dosage: UNK UNK, EVERY 28 DAYS
     Route: 058
     Dates: start: 2019

REACTIONS (4)
  - Chest pain [Unknown]
  - Speech disorder [Unknown]
  - BRCA1 gene mutation [Unknown]
  - Dyspnoea [Unknown]
